FAERS Safety Report 8727365 (Version 3)
Quarter: 2013Q1

REPORT INFORMATION
  Report Type: Spontaneous
  Country: US (occurrence: US)
  Receive Date: 20120816
  Receipt Date: 20130104
  Transmission Date: 20140127
  Serious: Yes (Other)
  Sender: FDA-Public Use
  Company Number: US-MYLANLABS-2012S1015855

PATIENT
  Age: 90 Year
  Sex: Male

DRUGS (1)
  1. AMIODARONE [Suspect]
     Indication: ARRHYTHMIA
     Dosage: 200 MG/DAY
     Route: 065

REACTIONS (1)
  - Myoclonus [Recovering/Resolving]
